FAERS Safety Report 21806962 (Version 4)
Quarter: 2023Q2

REPORT INFORMATION
  Report Type: Spontaneous
  Country: US (occurrence: US)
  Receive Date: 20230102
  Receipt Date: 20230505
  Transmission Date: 20230721
  Serious: No
  Sender: FDA-Public Use
  Company Number: US-BoehringerIngelheim-2023-BI-210630

PATIENT
  Age: 57 Year
  Sex: Female

DRUGS (2)
  1. SPIRIVA HANDIHALER [Suspect]
     Active Substance: TIOTROPIUM BROMIDE MONOHYDRATE
     Indication: Cardiac failure congestive
     Dosage: 1 PUFF BY MOUTH DAILY FROM 1 CAPSULE
     Route: 048
     Dates: start: 20221221
  2. SPIRIVA HANDIHALER [Suspect]
     Active Substance: TIOTROPIUM BROMIDE MONOHYDRATE
     Dosage: 1 PUFF BY MOUTH DAILY FROM 1 CAPSULE
     Route: 048
     Dates: start: 20221221

REACTIONS (4)
  - Extra dose administered [Unknown]
  - Drug delivery system malfunction [Unknown]
  - Prescribed underdose [Unknown]
  - Intentional product use issue [Unknown]

NARRATIVE: CASE EVENT DATE: 20221224
